FAERS Safety Report 7623235-3 (Version None)
Quarter: 2011Q3

REPORT INFORMATION
  Report Type: 
  Country: None (occurrence: None)
  Receive Date: 20110720
  Receipt Date: 20110705
  Transmission Date: 20111222
  Serious: Yes (Hospitalization)
  Sender: FDA-Public Use
  Company Number: US-SANOFI-AVENTIS-2011SA044209

PATIENT
  Age: 76 Year
  Sex: Male
  Weight: 100 kg

DRUGS (5)
  1. WARFARIN SODIUM [Concomitant]
     Route: 065
  2. METOPROLOL TARTRATE [Concomitant]
     Route: 065
  3. TICLOPIDINE HCL [Concomitant]
     Route: 065
  4. DRONEDARONE HCL [Suspect]
     Indication: ATRIAL FIBRILLATION
     Route: 048
     Dates: start: 20101206, end: 20110425
  5. DOXAZOSIN MESYLATE [Concomitant]
     Route: 065

REACTIONS (8)
  - DIZZINESS [None]
  - SYNCOPE [None]
  - FALL [None]
  - VERTIGO [None]
  - UPPER LIMB FRACTURE [None]
  - CAROTID ARTERY STENOSIS [None]
  - INJURY [None]
  - LIP INJURY [None]
